FAERS Safety Report 6655407-9 (Version None)
Quarter: 2010Q1

REPORT INFORMATION
  Report Type: 
  Country: None (occurrence: None)
  Receive Date: 20100329
  Receipt Date: 20100325
  Transmission Date: 20100710
  Serious: Yes (Death, Other)
  Sender: FDA-Public Use
  Company Number: PHHY2010JP10764

PATIENT
  Age: 76 Year
  Sex: Male

DRUGS (3)
  1. ZOMETA [Suspect]
     Indication: METASTASES TO BONE
     Dosage: UNK
     Route: 042
     Dates: start: 20100218
  2. OXYCONTIN [Suspect]
     Indication: BONE PAIN
     Dosage: UNK
     Route: 065
  3. CHEMOTHERAPEUTICS NOS [Concomitant]

REACTIONS (5)
  - INTERSTITIAL LUNG DISEASE [None]
  - MECHANICAL VENTILATION [None]
  - PNEUMONIA ASPIRATION [None]
  - RESPIRATORY FAILURE [None]
  - VOMITING [None]
